FAERS Safety Report 5915592-0 (Version None)
Quarter: 2008Q4

REPORT INFORMATION
  Report Type: 
  Country: None (occurrence: None)
  Receive Date: 20081010
  Receipt Date: 20080910
  Transmission Date: 20090506
  Serious: No
  Sender: FDA-Public Use
  Company Number: A0746784A

PATIENT
  Age: 76 Year
  Sex: Female

DRUGS (9)
  1. TYKERB [Suspect]
     Indication: BREAST CANCER
     Dosage: 5TAB PER DAY
     Route: 048
     Dates: start: 20080908
  2. UNKNOWN MEDICATION [Concomitant]
  3. NEURONTIN [Concomitant]
  4. AVAPRO [Concomitant]
  5. PRAVACHOL [Concomitant]
  6. COUMADIN [Concomitant]
  7. CENTRUM SILVER [Concomitant]
  8. HYDROCHLOROTHIAZIDE [Concomitant]
  9. UNKNOWN MEDICATION [Concomitant]

REACTIONS (1)
  - DIARRHOEA [None]
